FAERS Safety Report 6401835-6 (Version None)
Quarter: 2009Q4

REPORT INFORMATION
  Report Type: 
  Country: None (occurrence: None)
  Receive Date: 20091013
  Receipt Date: 20091013
  Transmission Date: 20100525
  Serious: Yes (Other)
  Sender: FDA-Public Use
  Company Number: None

PATIENT

DRUGS (2)
  1. NAPROXEN [Suspect]
     Indication: ARTHRITIS
     Dosage: 500MG BID PO
     Route: 048
     Dates: start: 20060901, end: 20091005
  2. NAPROXEN [Suspect]
     Indication: ARTHRITIS
     Dosage: 500MG BID PO
     Route: 048
     Dates: start: 20091005, end: 20091010

REACTIONS (2)
  - NO THERAPEUTIC RESPONSE [None]
  - PRODUCT SUBSTITUTION ISSUE [None]
